FAERS Safety Report 6383054-5 (Version None)
Quarter: 2009Q3

REPORT INFORMATION
  Report Type: 
  Country: None (occurrence: None)
  Receive Date: 20090930
  Receipt Date: 20090917
  Transmission Date: 20100115
  Serious: Yes (Other)
  Sender: FDA-Public Use
  Company Number: HK-GENENTECH-290986

PATIENT
  Sex: Female

DRUGS (4)
  1. AVASTIN [Suspect]
     Indication: BREAST CANCER METASTATIC
     Dosage: 800 MG, Q3W
     Route: 042
     Dates: start: 20090731, end: 20090821
  2. XELODA [Suspect]
     Indication: BREAST CANCER METASTATIC
     Dosage: 3800 MG, UNK
     Route: 048
     Dates: start: 20090731, end: 20090903
  3. PYRIDOXINE [Concomitant]
     Indication: DRUG USE FOR UNKNOWN INDICATION
     Dosage: UNK
     Dates: start: 20090821
  4. METOCLOPRAMIDE [Concomitant]
     Indication: DRUG USE FOR UNKNOWN INDICATION
     Dosage: UNK
     Dates: start: 20090821

REACTIONS (1)
  - DRUG ERUPTION [None]
